FAERS Safety Report 24426912 (Version 1)
Quarter: 2024Q4

REPORT INFORMATION
  Report Type: Report from Study
  Country: CO (occurrence: CO)
  Receive Date: 20241011
  Receipt Date: 20241011
  Transmission Date: 20250115
  Serious: Yes (Hospitalization, Other)
  Sender: BIOVITRUM
  Company Number: CO-AstraZeneca-CH-00718451A

PATIENT
  Age: 4 Month
  Sex: Male

DRUGS (1)
  1. SYNAGIS [Suspect]
     Active Substance: PALIVIZUMAB
     Indication: Respiratory disorder
     Dosage: 15 MILLIGRAM/KILOGRAM, QMONTH
     Dates: start: 20240602

REACTIONS (2)
  - Dyspnoea [Recovering/Resolving]
  - Atelectasis [Unknown]

NARRATIVE: CASE EVENT DATE: 20240911
